FAERS Safety Report 18462443 (Version 2)
Quarter: 2020Q4

REPORT INFORMATION
  Report Type: Spontaneous
  Country: AR (occurrence: AR)
  Receive Date: 20201104
  Receipt Date: 20201217
  Transmission Date: 20210114
  Serious: Yes (Other)
  Sender: FDA-Public Use
  Company Number: NVSC2020AR255188

PATIENT
  Age: 40 Year
  Sex: Female

DRUGS (3)
  1. APREMILAST [Concomitant]
     Active Substance: APREMILAST
     Indication: PRODUCT USED FOR UNKNOWN INDICATION
     Dosage: UNK
     Route: 065
  2. SECUKINUMAB. [Suspect]
     Active Substance: SECUKINUMAB
     Indication: PSORIASIS
     Dosage: 300 MG, Q4W
     Route: 058
     Dates: start: 20200128, end: 202004
  3. LEVOTHYROXINE. [Concomitant]
     Active Substance: LEVOTHYROXINE
     Indication: PRODUCT USED FOR UNKNOWN INDICATION
     Dosage: 75 UG, QD
     Route: 065

REACTIONS (5)
  - Vulvovaginal candidiasis [Recovering/Resolving]
  - Psoriasis [Recovering/Resolving]
  - Impetigo [Recovering/Resolving]
  - Superinfection [Recovering/Resolving]
  - Candida infection [Recovering/Resolving]
